FAERS Safety Report 6402152-0 (Version None)
Quarter: 2009Q4

REPORT INFORMATION
  Report Type: 
  Country: None (occurrence: None)
  Receive Date: 20091014
  Receipt Date: 20091014
  Transmission Date: 20100525
  Serious: Yes (Other)
  Sender: FDA-Public Use
  Company Number: None

PATIENT
  Sex: Female
  Weight: 59.4212 kg

DRUGS (1)
  1. FOSOMAX 70 MG WATSON LABS [Suspect]
     Indication: OSTEOPOROSIS
     Dosage: 1 TAB WEEK ONCE A WEEK MOUTH 047
     Route: 048
     Dates: start: 20090711

REACTIONS (1)
  - BONE PAIN [None]
